FAERS Safety Report 21803508 (Version 1)
Quarter: 2023Q1

REPORT INFORMATION
  Report Type: Report from Study
  Country: US (occurrence: US)
  Receive Date: 20230101
  Receipt Date: 20230101
  Transmission Date: 20230417
  Serious: No
  Sender: FDA-Public Use
  Company Number: US-ABBVIE-22K-163-4489028-00

PATIENT
  Sex: Female

DRUGS (2)
  1. IMBRUVICA [Suspect]
     Active Substance: IBRUTINIB
     Indication: Chronic lymphocytic leukaemia
     Route: 048
     Dates: start: 202205, end: 202205
  2. IMBRUVICA [Suspect]
     Active Substance: IBRUTINIB
     Indication: Chronic lymphocytic leukaemia
     Dosage: ONSET DATE FOR EVENT MOUTH SORES UNDER TONGUE GUMS AND CHEEKS, MAKE IT HARD TO EAT AND EXTREMELY ...
     Route: 048
     Dates: start: 20220514

REACTIONS (2)
  - Stomatitis [Unknown]
  - Fatigue [Unknown]
